FAERS Safety Report 6150095-2 (Version None)
Quarter: 2009Q2

REPORT INFORMATION
  Report Type: 
  Country: None (occurrence: None)
  Receive Date: 20090409
  Receipt Date: 20090331
  Transmission Date: 20091009
  Serious: Yes (Hospitalization)
  Sender: FDA-Public Use
  Company Number: IT-PFIZER INC-2009190635

PATIENT

DRUGS (1)
  1. FARMORUBICIN [Suspect]
     Indication: BLADDER CANCER
     Dosage: UNK

REACTIONS (1)
  - CHEMICAL CYSTITIS [None]
